FAERS Safety Report 5698771-X (Version None)
Quarter: 2008Q2

REPORT INFORMATION
  Report Type: 
  Country: None (occurrence: None)
  Receive Date: 20080404
  Receipt Date: 20080320
  Transmission Date: 20081010
  Serious: Yes (Other)
  Sender: FDA-Public Use
  Company Number: 8031082

PATIENT
  Age: 32 Year
  Sex: Female

DRUGS (2)
  1. KEPPRA [Suspect]
     Dates: start: 20010101
  2. KEPPRA [Suspect]
     Dosage: 4500 MG /D PO
     Route: 048
     Dates: start: 20070101

REACTIONS (4)
  - AGGRESSION [None]
  - LOSS OF EMPLOYMENT [None]
  - MENTAL DISORDER [None]
  - OVERDOSE [None]
